FAERS Safety Report 4771265-1 (Version None)
Quarter: 2005Q3

REPORT INFORMATION
  Report Type: 
  Country: None (occurrence: None)
  Receive Date: 20050914
  Receipt Date: 20050830
  Transmission Date: 20060218
  Serious: Yes (Hospitalization, Other)
  Sender: FDA-Public Use
  Company Number: USA0508106881

PATIENT
  Age: 91 Year
  Sex: Female

DRUGS (6)
  1. FORTEO [Suspect]
     Dates: start: 20050101
  2. EVISTA [Suspect]
  3. MICARDIS [Concomitant]
  4. ZOCOR [Concomitant]
  5. THYROID TAB [Concomitant]
  6. RESTASIS (CICLOSPORIN) [Concomitant]

REACTIONS (4)
  - DYSPNOEA [None]
  - ECHOCARDIOGRAM ABNORMAL [None]
  - FEELING ABNORMAL [None]
  - MITRAL VALVE REPLACEMENT [None]
